FAERS Safety Report 7179376-0 (Version None)
Quarter: 2010Q4

REPORT INFORMATION
  Report Type: 
  Country: None (occurrence: None)
  Receive Date: 20101217
  Receipt Date: 20101217
  Transmission Date: 20110411
  Serious: Yes (Hospitalization)
  Sender: FDA-Public Use
  Company Number: None

PATIENT
  Age: 64 Year
  Sex: Male
  Weight: 98 kg

DRUGS (1)
  1. DOXYLAMINE [Suspect]
     Indication: NASOPHARYNGITIS
     Dosage: 6.25 MG ONCE PO
     Route: 048
     Dates: start: 20101215, end: 20101215

REACTIONS (1)
  - SYNCOPE [None]
